FAERS Safety Report 21157844 (Version 1)
Quarter: 2022Q3

REPORT INFORMATION
  Report Type: Spontaneous
  Country: US (occurrence: US)
  Receive Date: 20220801
  Receipt Date: 20220801
  Transmission Date: 20221027
  Serious: Yes (Other)
  Sender: FDA-Public Use
  Company Number: None

PATIENT
  Age: 29 Year
  Sex: Male

DRUGS (6)
  1. ERYTHROMYCIN [Interacting]
     Active Substance: ERYTHROMYCIN
     Indication: Impaired gastric emptying
     Dosage: 100 MILLIGRAM, TID, (3 TIMES A DAY, RECEIVED TOTAL 3 COURSES)
     Route: 065
  2. CLOZAPINE [Interacting]
     Active Substance: CLOZAPINE
     Indication: Schizophrenia
     Dosage: 350 MILLIGRAM, HS, (350 MG/D AT BEDTIME)
     Route: 065
  3. CLOZAPINE [Interacting]
     Active Substance: CLOZAPINE
     Dosage: 300 MILLIGRAM, QD (DURING TREATMENT WITH ERYTHROMYCIN THERAPY)
     Route: 065
  4. CLOZAPINE [Interacting]
     Active Substance: CLOZAPINE
     Dosage: 250 MILLIGRAM, QD (AFTER DISCONTINUATION OF ERYTHROMYCIN THERAPY)
     Route: 065
  5. HALOPERIDOL [Concomitant]
     Active Substance: HALOPERIDOL
     Indication: Schizophrenia
     Dosage: 2 MILLIGRAM, QD
     Route: 065
  6. CALCIUM CARBONATE [Concomitant]
     Active Substance: CALCIUM CARBONATE
     Indication: Gastrooesophageal reflux disease
     Dosage: UNK
     Route: 065

REACTIONS (4)
  - Impaired gastric emptying [Recovering/Resolving]
  - Drug interaction [Unknown]
  - Drug level increased [Unknown]
  - Off label use [Unknown]
